FAERS Safety Report 13264230 (Version 1)
Quarter: 2017Q1

REPORT INFORMATION
  Report Type: Spontaneous
  Country: US (occurrence: US)
  Receive Date: 20170223
  Receipt Date: 20170223
  Transmission Date: 20170428
  Serious: Yes (Hospitalization, Other)
  Sender: FDA-Public Use
  Company Number: None

PATIENT
  Age: 11 Year
  Sex: Male

DRUGS (2)
  1. VYVANSE [Suspect]
     Active Substance: LISDEXAMFETAMINE DIMESYLATE
     Indication: ATTENTION DEFICIT/HYPERACTIVITY DISORDER
     Dosage: 1 CAPSULE ONCE DAILY AM BY MOUTH
     Route: 048
     Dates: start: 20130925, end: 20150422
  2. MOTRIN [Concomitant]
     Active Substance: IBUPROFEN

REACTIONS (5)
  - Unresponsive to stimuli [None]
  - Seizure [None]
  - Respiratory arrest [None]
  - Hypertension [None]
  - Renal necrosis [None]

NARRATIVE: CASE EVENT DATE: 20150422
